FAERS Safety Report 6643603-6 (Version None)
Quarter: 2010Q1

REPORT INFORMATION
  Report Type: 
  Country: None (occurrence: None)
  Receive Date: 20100320
  Receipt Date: 20100309
  Transmission Date: 20100710
  Serious: Yes (Other)
  Sender: FDA-Public Use
  Company Number: US-JNJFOC-20100303728

PATIENT
  Age: 82 Year
  Sex: Female
  Weight: 48.54 kg

DRUGS (2)
  1. TYLENOL [Suspect]
     Route: 048
  2. TYLENOL [Suspect]
     Indication: ANALGESIC THERAPY
     Dosage: 4 TO 6 MONTHS RECOMMENDED BY PHYSICIAN
     Route: 048

REACTIONS (9)
  - BACK INJURY [None]
  - FACIAL BONES FRACTURE [None]
  - FALL [None]
  - GAIT DISTURBANCE [None]
  - JOINT INJURY [None]
  - MUSCULAR WEAKNESS [None]
  - PRODUCT QUALITY ISSUE [None]
  - RIB FRACTURE [None]
  - UPPER LIMB FRACTURE [None]
